FAERS Safety Report 12829736 (Version 2)
Quarter: 2016Q4

REPORT INFORMATION
  Report Type: Spontaneous
  Country: US (occurrence: US)
  Receive Date: 20161007
  Receipt Date: 20161128
  Transmission Date: 20170207
  Serious: Yes (Other)
  Sender: FDA-Public Use
  Company Number: US-SA-2016SA125503

PATIENT
  Age: 58 Year
  Sex: Female

DRUGS (27)
  1. PRISTIQ EXTENDED-RELEASE [Concomitant]
     Active Substance: DESVENLAFAXINE SUCCINATE
  2. TRAZODONE HYDROCHLORIDE. [Concomitant]
     Active Substance: TRAZODONE HYDROCHLORIDE
  3. AUBAGIO [Suspect]
     Active Substance: TERIFLUNOMIDE
     Indication: MULTIPLE SCLEROSIS
     Route: 048
     Dates: start: 20160224
  4. RANITIDINE. [Concomitant]
     Active Substance: RANITIDINE
  5. BACLOFEN. [Concomitant]
     Active Substance: BACLOFEN
  6. SALAGEN [Concomitant]
     Active Substance: PILOCARPINE HYDROCHLORIDE
  7. FEXOFENADINE [Concomitant]
     Active Substance: FEXOFENADINE\FEXOFENADINE HYDROCHLORIDE
  8. TRILIPIX [Concomitant]
     Active Substance: FENOFIBRIC ACID
  9. AUBAGIO [Suspect]
     Active Substance: TERIFLUNOMIDE
     Indication: MULTIPLE SCLEROSIS
     Route: 048
     Dates: start: 201603
  10. NABUMETONE. [Concomitant]
     Active Substance: NABUMETONE
  11. OMEPRAZOLE. [Concomitant]
     Active Substance: OMEPRAZOLE
     Dosage: 40 MG
  12. AMPYRA [Concomitant]
     Active Substance: DALFAMPRIDINE
  13. ABILIFY [Concomitant]
     Active Substance: ARIPIPRAZOLE
  14. CLONAZEPAM. [Concomitant]
     Active Substance: CLONAZEPAM
  15. FLUTICASONE PROPIONATE. [Concomitant]
     Active Substance: FLUTICASONE PROPIONATE
  16. PRILOSEC [Concomitant]
     Active Substance: OMEPRAZOLE MAGNESIUM
  17. HYDROCODONE W/ACETAMINOPHEN [Concomitant]
     Active Substance: ACETAMINOPHEN\HYDROCODONE BITARTRATE
  18. GABAPENTIN. [Concomitant]
     Active Substance: GABAPENTIN
  19. SIMVASTATIN. [Concomitant]
     Active Substance: SIMVASTATIN
  20. ALBUTEROL. [Concomitant]
     Active Substance: ALBUTEROL
     Dosage: FORM: NEB
  21. SINGULAIR [Concomitant]
     Active Substance: MONTELUKAST SODIUM
  22. AUBAGIO [Suspect]
     Active Substance: TERIFLUNOMIDE
     Indication: MULTIPLE SCLEROSIS
     Route: 048
     Dates: start: 201501
  23. AUBAGIO [Suspect]
     Active Substance: TERIFLUNOMIDE
     Indication: MULTIPLE SCLEROSIS
     Route: 048
     Dates: start: 20160224
  24. COPAXONE [Concomitant]
     Active Substance: GLATIRAMER ACETATE
  25. PENICILLIN [Concomitant]
     Active Substance: PENICILLIN
  26. POTASSIUM [Concomitant]
     Active Substance: POTASSIUM
  27. PRIMIDONE. [Concomitant]
     Active Substance: PRIMIDONE

REACTIONS (10)
  - Blindness unilateral [Unknown]
  - Diarrhoea [Recovered/Resolved]
  - Multiple sclerosis relapse [Not Recovered/Not Resolved]
  - Burning sensation [Not Recovered/Not Resolved]
  - Balance disorder [Unknown]
  - Hypoaesthesia [Not Recovered/Not Resolved]
  - Drug ineffective [Unknown]
  - Fall [Unknown]
  - Deafness unilateral [Unknown]
  - Musculoskeletal disorder [Not Recovered/Not Resolved]

NARRATIVE: CASE EVENT DATE: 201501
